FAERS Safety Report 20734492 (Version 2)
Quarter: 2022Q2

REPORT INFORMATION
  Report Type: Spontaneous
  Country: CA (occurrence: CA)
  Receive Date: 20220421
  Receipt Date: 20220513
  Transmission Date: 20220721
  Serious: Yes (Other)
  Sender: FDA-Public Use
  Company Number: CA-CELLTRION INC.-2022CA004745

PATIENT

DRUGS (1)
  1. TRUXIMA [Suspect]
     Active Substance: RITUXIMAB-ABBS
     Indication: Thrombotic thrombocytopenic purpura
     Dosage: 800 MG, WEEKLY X 4 (375MG/M2 X BSA; TOTAL: 3200 MG)

REACTIONS (4)
  - Thrombotic thrombocytopenic purpura [Unknown]
  - Inability to afford medication [Unknown]
  - Insurance issue [Unknown]
  - Off label use [Unknown]
